FAERS Safety Report 10914939 (Version 1)
Quarter: 2015Q1

REPORT INFORMATION
  Report Type: Report from Study
  Country: US (occurrence: US)
  Receive Date: 20150314
  Receipt Date: 20150314
  Transmission Date: 20150721
  Serious: Yes (Other)
  Sender: FDA-Public Use
  Company Number: US-BIOGENIDEC-2015BI032773

PATIENT
  Age: 51 Year
  Sex: Female

DRUGS (13)
  1. EXCEDRIN [Concomitant]
     Active Substance: ACETAMINOPHEN\ASPIRIN\CAFFEINE
     Dates: start: 20130827
  2. PROPRANOLOL [Concomitant]
     Active Substance: PROPRANOLOL\PROPRANOLOL HYDROCHLORIDE
     Dates: start: 20130827
  3. AZELASTINE SPR [Concomitant]
  4. ZOLPIDEM [Concomitant]
     Active Substance: ZOLPIDEM\ZOLPIDEM TARTRATE
     Dates: start: 20130827
  5. TECFIDERA [Suspect]
     Active Substance: DIMETHYL FUMARATE
     Indication: MULTIPLE SCLEROSIS
     Route: 048
     Dates: start: 20130828
  6. CA/MG/ZN [Concomitant]
     Dates: start: 20130827
  7. POT GLUCONAT [Concomitant]
     Dates: start: 20130827
  8. BUPROPION ER [Concomitant]
     Active Substance: BUPROPION
     Dates: start: 20130827
  9. ALEVE [Concomitant]
     Active Substance: NAPROXEN SODIUM
     Dates: start: 20130827
  10. ALPRAZOLAM. [Concomitant]
     Active Substance: ALPRAZOLAM
     Dates: start: 20130827
  11. OMEPRAZOLE. [Concomitant]
     Active Substance: OMEPRAZOLE
  12. CRANBERRY. [Concomitant]
     Active Substance: CRANBERRY
     Dates: start: 20130827
  13. CYMBALTA [Concomitant]
     Active Substance: DULOXETINE HYDROCHLORIDE
     Dates: start: 20130827

REACTIONS (2)
  - Seizure [Unknown]
  - Multiple sclerosis relapse [Not Recovered/Not Resolved]

NARRATIVE: CASE EVENT DATE: 201502
